FAERS Safety Report 5050897-X (Version None)
Quarter: 2006Q3

REPORT INFORMATION
  Report Type: 
  Country: None (occurrence: None)
  Receive Date: 20060710
  Receipt Date: 20060630
  Transmission Date: 20061208
  Serious: Yes (Other)
  Sender: FDA-Public Use
  Company Number: 2006-DE-03046GD

PATIENT
  Age: 33 Year
  Sex: Female
  Weight: 66 kg

DRUGS (6)
  1. MORPHINE [Suspect]
     Indication: SPINAL ANAESTHESIA
     Dosage: 100 MG, IT
     Route: 037
  2. BUPIVACAINE [Suspect]
     Indication: SPINAL ANAESTHESIA
     Dosage: 10 MG (SEE TEXT), IT
     Route: 037
  3. RINGER LACTATE (RINGER-LACTATE /01126301/) [Concomitant]
  4. EPHEDRINE SUL CAP [Concomitant]
  5. OCYTOCINE (OXYTOCIN) [Concomitant]
  6. CEFAZOLINE (CEFAZOLIN) [Concomitant]

REACTIONS (7)
  - CONFUSIONAL STATE [None]
  - DRUG EXPOSURE DURING PREGNANCY [None]
  - HYPERHIDROSIS [None]
  - HYPOTHERMIA [None]
  - NAUSEA [None]
  - POST PROCEDURAL COMPLICATION [None]
  - VOMITING [None]
